FAERS Safety Report 7731134-1 (Version None)
Quarter: 2011Q3

REPORT INFORMATION
  Report Type: 
  Country: None (occurrence: None)
  Receive Date: 20110906
  Receipt Date: 20110906
  Transmission Date: 20111222
  Serious: Yes (Other)
  Sender: FDA-Public Use
  Company Number: None

PATIENT
  Age: 45 Year
  Sex: Male
  Weight: 71.214 kg

DRUGS (1)
  1. DOXYCYCLINE [Suspect]
     Indication: SKIN INFECTION
     Dosage: 100MG
     Route: 048
     Dates: start: 20110429, end: 20110520

REACTIONS (6)
  - CHEST PAIN [None]
  - EXPOSURE TO TOXIC AGENT [None]
  - BURNING SENSATION [None]
  - DYSPEPSIA [None]
  - PARAESTHESIA [None]
  - HYPOAESTHESIA [None]
